FAERS Safety Report 5199098-5 (Version None)
Quarter: 2006Q4

REPORT INFORMATION
  Report Type: 
  Country: None (occurrence: None)
  Receive Date: 20060919
  Receipt Date: 20060309
  Transmission Date: 20070319
  Serious: Yes (Other)
  Sender: FDA-Public Use
  Company Number: HQWYE331414MAR06

PATIENT
  Age: 42 Year
  Sex: Male

DRUGS (8)
  1. ADVIL [Suspect]
     Indication: BACK PAIN
     Dosage: SEE IMAGE, ORAL
     Route: 048
     Dates: start: 19970101, end: 20050801
  2. ADVIL [Suspect]
     Indication: MUSCULOSKELETAL PAIN
     Dosage: SEE IMAGE, ORAL
     Route: 048
     Dates: start: 19970101, end: 20050801
  3. ADVIL [Suspect]
     Indication: PAIN
     Dosage: SEE IMAGE, ORAL
     Route: 048
     Dates: start: 19970101, end: 20050801
  4. ADVIL [Suspect]
     Indication: BACK PAIN
     Dosage: SEE IMAGE, ORAL
     Route: 048
     Dates: start: 20050901, end: 20060201
  5. ADVIL [Suspect]
     Indication: MUSCULOSKELETAL PAIN
     Dosage: SEE IMAGE, ORAL
     Route: 048
     Dates: start: 20050901, end: 20060201
  6. ADVIL [Suspect]
     Indication: PAIN
     Dosage: SEE IMAGE, ORAL
     Route: 048
     Dates: start: 20050901, end: 20060201
  7. ACCUPRIL [Concomitant]
  8. LITHIUM CARBONATE [Concomitant]

REACTIONS (2)
  - FEELING ABNORMAL [None]
  - MEMORY IMPAIRMENT [None]
